FAERS Safety Report 22346215 (Version 2)
Quarter: 2023Q2

REPORT INFORMATION
  Report Type: Other
  Country: US (occurrence: US)
  Receive Date: 20230519
  Receipt Date: 20230528
  Transmission Date: 20230721
  Serious: Yes (Other)
  Sender: FDA-Public Use
  Company Number: US-drreddys-LIT/USA/22/0152432

PATIENT
  Age: 54 Year
  Sex: Male

DRUGS (10)
  1. AYVAKIT [Suspect]
     Active Substance: AVAPRITINIB
     Indication: Gastrointestinal stromal tumour
     Dosage: UNK
     Route: 065
  2. IMATINIB MESYLATE [Suspect]
     Active Substance: IMATINIB MESYLATE
     Indication: Gastrointestinal stromal tumour
     Dosage: UNK
     Route: 065
  3. REGORAFENIB [Suspect]
     Active Substance: REGORAFENIB
     Indication: Gastrointestinal stromal tumour
     Dosage: APPROXIMATELY 2 YEARS
     Route: 065
  4. SUNITINIB MALATE [Suspect]
     Active Substance: SUNITINIB MALATE
     Indication: Gastrointestinal stromal tumour
     Dosage: APPROXIMATELY 2 YEARS
     Route: 065
  5. CABOZANTINIB [Suspect]
     Active Substance: CABOZANTINIB
     Indication: Gastrointestinal stromal tumour
     Dosage: UNK
     Route: 065
  6. NILOTINIB [Suspect]
     Active Substance: NILOTINIB
     Indication: Gastrointestinal stromal tumour
     Dosage: UNK
     Route: 065
  7. BINIMETINIB [Suspect]
     Active Substance: BINIMETINIB
     Indication: Gastrointestinal stromal tumour
     Dosage: UNK
     Route: 065
  8. PAZOPANIB [Suspect]
     Active Substance: PAZOPANIB
     Indication: Gastrointestinal stromal tumour
     Dosage: UNK
     Route: 065
  9. RIPRETINIB [Suspect]
     Active Substance: RIPRETINIB
     Indication: Gastrointestinal stromal tumour
     Dosage: UNK
     Route: 065
  10. SIROLIMUS [Concomitant]
     Active Substance: SIROLIMUS
     Indication: Gastrointestinal stromal tumour
     Route: 065

REACTIONS (2)
  - Drug resistance [Unknown]
  - Hypersensitivity [Unknown]
